FAERS Safety Report 22335779 (Version 1)
Quarter: 2023Q2

REPORT INFORMATION
  Report Type: Spontaneous
  Country: US (occurrence: None)
  Receive Date: 20230518
  Receipt Date: 20230518
  Transmission Date: 20230722
  Serious: No
  Sender: FDA-Public Use
  Company Number: US-Axsome Therapeutics, Inc.-AXS202302-000280

PATIENT
  Sex: Male

DRUGS (1)
  1. SUNOSI [Suspect]
     Active Substance: SOLRIAMFETOL
     Indication: Product used for unknown indication
     Route: 048
     Dates: start: 20230208

REACTIONS (1)
  - Blood glucose abnormal [Unknown]

NARRATIVE: CASE EVENT DATE: 20230209
